FAERS Safety Report 4457373-3 (Version None)
Quarter: 2004Q3

REPORT INFORMATION
  Report Type: 
  Country: None (occurrence: None)
  Receive Date: 20040922
  Receipt Date: 20040907
  Transmission Date: 20050211
  Serious: Yes (Other)
  Sender: FDA-Public Use
  Company Number: USA040977557

PATIENT
  Sex: Female

DRUGS (1)
  1. PROZAC [Suspect]
     Dates: start: 20010101

REACTIONS (2)
  - GASTRIC BYPASS [None]
  - MEDICATION ERROR [None]
